FAERS Safety Report 4704359-7 (Version None)
Quarter: 2005Q2

REPORT INFORMATION
  Report Type: 
  Country: None (occurrence: None)
  Receive Date: 20050628
  Receipt Date: 20050622
  Transmission Date: 20051028
  Serious: Yes (Death)
  Sender: FDA-Public Use
  Company Number: 200511950GDS

PATIENT
  Age: 72 Year
  Sex: Female
  Weight: 60 kg

DRUGS (5)
  1. AVELOX [Suspect]
     Indication: PNEUMONIA
     Dosage: 400 MG, TOTAL DAILY, INTRAVENOUS
     Route: 042
     Dates: start: 20050602
  2. KLACID [Concomitant]
  3. GLICLAZIDE [Concomitant]
  4. SIMVASTATIN [Concomitant]
  5. ATROVENT [Concomitant]

REACTIONS (6)
  - ANAPHYLACTIC REACTION [None]
  - AREFLEXIA [None]
  - CARDIOVASCULAR DISORDER [None]
  - RESUSCITATION [None]
  - URTICARIA [None]
  - VOMITING [None]
